FAERS Safety Report 10381989 (Version 1)
Quarter: 2014Q3

REPORT INFORMATION
  Report Type: Spontaneous
  Country: US (occurrence: US)
  Receive Date: 20140813
  Receipt Date: 20140813
  Transmission Date: 20150326
  Serious: No
  Sender: FDA-Public Use
  Company Number: US-PFIZER INC-2014226328

PATIENT
  Sex: Male

DRUGS (2)
  1. AZITHROMYCIN [Suspect]
     Active Substance: AZITHROMYCIN ANHYDROUS
     Indication: SINUSITIS
     Dosage: 250 MG ORAL TABLET AT 2 TABLETS ON THE FIRST DAY AND ONE TABLET EVERY DAY FOR THE NEXT FOUR DAYS
     Route: 048
     Dates: start: 20140730
  2. AZITHROMYCIN [Suspect]
     Active Substance: AZITHROMYCIN ANHYDROUS
     Dosage: 250 MG ORAL TABLET AT 2 TABLETS ON THE FIRST DAY AND ONE TABLET EVERY DAY FOR THE NEXT FOUR DAYS
     Route: 048
     Dates: start: 20140730, end: 201408

REACTIONS (1)
  - Diarrhoea [Unknown]

NARRATIVE: CASE EVENT DATE: 2014
